FAERS Safety Report 16234604 (Version 1)
Quarter: 2019Q2

REPORT INFORMATION
  Report Type: Spontaneous
  Country: PT (occurrence: PT)
  Receive Date: 20190424
  Receipt Date: 20190424
  Transmission Date: 20190711
  Serious: Yes (Hospitalization, Other)
  Sender: FDA-Public Use
  Company Number: PHHY2019PT092453

PATIENT
  Age: 56 Year
  Sex: Female
  Weight: 60 kg

DRUGS (1)
  1. ZOLEDRONIC ACID [Suspect]
     Active Substance: ZOLEDRONIC ACID
     Indication: OSTEOPOROSIS
     Dosage: 1 DF, QD
     Route: 042
     Dates: start: 20180625

REACTIONS (2)
  - Pachymeningitis [Recovering/Resolving]
  - Cellulitis orbital [Recovering/Resolving]

NARRATIVE: CASE EVENT DATE: 20180704
